FAERS Safety Report 4269802-9 (Version None)
Quarter: 2004Q1

REPORT INFORMATION
  Report Type: 
  Country: None (occurrence: None)
  Receive Date: 20040113
  Receipt Date: 20030129
  Transmission Date: 20041129
  Serious: Yes (Life-Threatening, Hospitalization)
  Sender: FDA-Public Use
  Company Number: FLUV00302002840

PATIENT
  Age: 34 Year
  Sex: Female
  Weight: 47 kg

DRUGS (4)
  1. LUVOX [Suspect]
     Indication: MAJOR DEPRESSION
     Dosage: 100 MG DAILY PO
     Route: 048
     Dates: start: 20020909, end: 20021030
  2. SULPIRIDE (SULPIRIDE) [Suspect]
     Indication: PSYCHOTIC DISORDER
     Dosage: 400 MG DAILY PO
     Route: 048
     Dates: start: 20020919, end: 20021016
  3. ALPRAZOLAM [Concomitant]
  4. STILNOX (ZOLPIDEM) [Concomitant]

REACTIONS (2)
  - CEREBROVASCULAR ACCIDENT [None]
  - DRUG INTERACTION [None]
